FAERS Safety Report 20685467 (Version 4)
Quarter: 2023Q2

REPORT INFORMATION
  Report Type: Report from Study
  Country: IL (occurrence: IL)
  Receive Date: 20220407
  Receipt Date: 20230518
  Transmission Date: 20230722
  Serious: Yes (Hospitalization, Other)
  Sender: FDA-Public Use
  Company Number: IL-TAKEDA-2022TUS022913

PATIENT
  Age: 57 Year
  Sex: Male

DRUGS (5)
  1. VELAGLUCERASE ALFA [Suspect]
     Active Substance: VELAGLUCERASE ALFA
     Indication: Gaucher^s disease
     Dosage: 15 INTERNATIONAL UNIT/KILOGRAM, Q2WEEKS
     Route: 042
     Dates: start: 20110727, end: 202203
  2. VELAGLUCERASE ALFA [Suspect]
     Active Substance: VELAGLUCERASE ALFA
     Dosage: 22 INTERNATIONAL UNIT/KILOGRAM, Q2WEEKS
     Route: 042
     Dates: start: 20230305
  3. ENOXAPARIN SODIUM [Concomitant]
     Active Substance: ENOXAPARIN SODIUM
     Dosage: UNK
     Route: 065
     Dates: start: 2017
  4. PROPRANOLOL HYDROCHLORIDE [Concomitant]
     Active Substance: PROPRANOLOL HYDROCHLORIDE
     Dosage: 20 MILLIGRAM
     Route: 065
     Dates: start: 2017
  5. ELIQUIS [Concomitant]
     Active Substance: APIXABAN
     Indication: Femur fracture
     Dosage: 2.5 MILLIGRAM, BID
     Route: 048
     Dates: start: 20190430

REACTIONS (1)
  - Hepatocellular carcinoma [Recovered/Resolved]

NARRATIVE: CASE EVENT DATE: 20220403
